FAERS Safety Report 25408460 (Version 1)
Quarter: 2025Q2

REPORT INFORMATION
  Report Type: Spontaneous
  Country: DE (occurrence: DE)
  Receive Date: 20250606
  Receipt Date: 20250606
  Transmission Date: 20250716
  Serious: Yes (Other)
  Sender: PHARMACEUTICAL ASSOC
  Company Number: DE-PAIPHARMA-2025-DE-000040

PATIENT
  Age: 67 Year
  Sex: Male

DRUGS (8)
  1. IBUPROFEN [Suspect]
     Active Substance: IBUPROFEN
     Indication: Pain
  2. LEVETIRACETAM [Suspect]
     Active Substance: LEVETIRACETAM
     Indication: Seizure
  3. DESMOPRESSIN [Suspect]
     Active Substance: DESMOPRESSIN
     Indication: Diabetes insipidus
     Route: 045
  4. FENTANYL [Suspect]
     Active Substance: FENTANYL
     Indication: Pain
  5. TRAMADOL [Suspect]
     Active Substance: TRAMADOL
     Indication: Pain
  6. HYDROCORTISONE [Concomitant]
     Active Substance: HYDROCORTISONE
  7. LEVOTHYROXINE [Concomitant]
     Active Substance: LEVOTHYROXINE
  8. TESTOSTERONE [Concomitant]
     Active Substance: TESTOSTERONE
     Route: 061

REACTIONS (2)
  - Hyponatraemia [Unknown]
  - Seizure [Unknown]
